FAERS Safety Report 7536262-1 (Version None)
Quarter: 2011Q2

REPORT INFORMATION
  Report Type: 
  Country: None (occurrence: None)
  Receive Date: 20110609
  Receipt Date: 20110531
  Transmission Date: 20111010
  Serious: Yes (Other)
  Sender: FDA-Public Use
  Company Number: JP-AMGEN-JPNSP2011026750

PATIENT
  Age: 64 Year
  Sex: Female
  Weight: 55 kg

DRUGS (17)
  1. PREDNISOLONE [Concomitant]
     Indication: JUVENILE ARTHRITIS
     Dosage: 20MG ONCE DAILY, 15MG TWICE DAILY
     Route: 048
  2. WARKMIN [Concomitant]
     Indication: OSTEOPOROSIS PROPHYLAXIS
     Dosage: 0.25 MG, 1X/DAY
     Route: 048
     Dates: start: 20110422
  3. ADEFURONIC [Concomitant]
     Indication: ARTHRALGIA
     Dosage: 25 MG, 2X/DAY
     Dates: start: 20110418
  4. ENBREL [Suspect]
     Indication: RHEUMATOID ARTHRITIS
     Dosage: 25 MG, 2X/WEEK
     Route: 058
     Dates: start: 20110510, end: 20110520
  5. ACTONEL [Concomitant]
     Indication: OSTEOPOROSIS PROPHYLAXIS
     Dosage: 17.5 MG, 1X/DAY
     Route: 048
     Dates: end: 20110520
  6. NEORAL [Concomitant]
     Indication: JUVENILE ARTHRITIS
     Dosage: 150 MG, 1X/DAY
     Route: 048
     Dates: start: 20110429
  7. MUCOSTA [Concomitant]
     Indication: PROPHYLAXIS
     Dosage: 100 MG, 2X/DAY
     Route: 048
     Dates: start: 20110329, end: 20110510
  8. ENBREL [Suspect]
     Indication: JUVENILE ARTHRITIS
  9. MAGNESIUM SULFATE [Concomitant]
     Indication: CONSTIPATION
     Dosage: 330 MG, 3X/DAY
     Route: 048
     Dates: start: 20110512
  10. CYCLOSPORINE [Concomitant]
     Dosage: UNK
     Route: 048
  11. LENDORMIN [Concomitant]
     Indication: INSOMNIA
     Dosage: UNK
     Route: 048
  12. LANSOPRAZOLE [Concomitant]
     Indication: REFLUX OESOPHAGITIS
     Dosage: UNK
  13. CELECOXIB [Concomitant]
     Indication: ARTHRALGIA
     Dosage: 200 MG, 2X/DAY
     Route: 048
     Dates: start: 20110329, end: 20110510
  14. SULFAMETHOXAZOLE [Suspect]
     Indication: INFECTION PROPHYLAXIS
     Dosage: UNK
     Route: 048
     Dates: start: 20110426, end: 20110520
  15. RABEPRAZOLE SODIUM [Concomitant]
     Indication: REFLUX OESOPHAGITIS
     Dosage: 10 MG, 2X/DAY
     Route: 048
     Dates: start: 20110509, end: 20110516
  16. LENDORMIN [Concomitant]
     Dosage: 0.25 MG, 1X/DAY
     Route: 048
     Dates: start: 20110428, end: 20110519
  17. LANSOPRAZOLE [Concomitant]
     Dosage: 30 MG, 1X/DAY
     Route: 048
     Dates: start: 20110517

REACTIONS (1)
  - HEPATITIS ACUTE [None]
